FAERS Safety Report 4559858-8 (Version None)
Quarter: 2005Q1

REPORT INFORMATION
  Report Type: 
  Country: None (occurrence: None)
  Receive Date: 20050124
  Receipt Date: 20050113
  Transmission Date: 20050727
  Serious: Yes (Life-Threatening, Hospitalization)
  Sender: FDA-Public Use
  Company Number: JP-MERCK-0501USA02641

PATIENT
  Age: 73 Year
  Sex: Female

DRUGS (5)
  1. FOSAMAX [Suspect]
     Indication: OSTEOPOROSIS
     Route: 048
     Dates: start: 20040409, end: 20041222
  2. THYRADIN [Concomitant]
     Indication: HYPOTHYROIDISM
     Route: 048
  3. CHOLECALCIFEROL [Concomitant]
     Route: 065
  4. ALFAROL [Concomitant]
     Indication: OSTEOPOROSIS
     Route: 048
  5. MEVALOTIN [Concomitant]
     Route: 048

REACTIONS (8)
  - DRY MOUTH [None]
  - FLATULENCE [None]
  - HYPOAESTHESIA [None]
  - LARGE INTESTINE CARCINOMA [None]
  - MUSCLE STRAIN [None]
  - MUSCULOSKELETAL STIFFNESS [None]
  - STOMACH DISCOMFORT [None]
  - TONGUE DISORDER [None]
